FAERS Safety Report 4304010-4 (Version None)
Quarter: 2004Q1

REPORT INFORMATION
  Report Type: 
  Country: None (occurrence: None)
  Receive Date: 20040223
  Receipt Date: 20031222
  Transmission Date: 20041129
  Serious: No
  Sender: FDA-Public Use
  Company Number: PHEH2003US10051

PATIENT
  Age: 45 Year
  Sex: Female
  Weight: 67.6 kg

DRUGS (10)
  1. ZELNORM [Suspect]
     Indication: IRRITABLE BOWEL SYNDROME
     Dosage: SEE IMAGE
     Dates: start: 20031010, end: 20031012
  2. ZELNORM [Suspect]
     Indication: IRRITABLE BOWEL SYNDROME
     Dosage: SEE IMAGE
     Dates: start: 20031016, end: 20031018
  3. TRAMADOL (TRAMADOL) [Concomitant]
  4. VIOXX [Concomitant]
  5. BACLOFEN [Concomitant]
  6. LEVSIN [Concomitant]
  7. GUAIFENESIN [Concomitant]
  8. ALBUTEROL [Concomitant]
  9. ADVAIR (SALMETEROL XINAFOATE) [Concomitant]
  10. UNITHROID [Concomitant]

REACTIONS (3)
  - HEADACHE [None]
  - NAUSEA [None]
  - VOMITING [None]
